FAERS Safety Report 10595446 (Version 1)
Quarter: 2014Q4

REPORT INFORMATION
  Report Type: Spontaneous
  Country: US (occurrence: None)
  Receive Date: 20141119
  Receipt Date: 20141119
  Transmission Date: 20150529
  Serious: No
  Sender: FDA-Public Use
  Company Number: None

PATIENT
  Age: 59 Year
  Sex: Female
  Weight: 90.72 kg

DRUGS (1)
  1. VOLTAREN [Suspect]
     Active Substance: DICLOFENAC SODIUM
     Indication: ARTHRALGIA
     Dosage: 2 OR 4 ML MEASURED VIA CARD; APPLIED TO A SURFACE, USUALLY THE SKIN
     Route: 061
     Dates: start: 20141113, end: 20141114

REACTIONS (3)
  - Skin warm [None]
  - Erythema [None]
  - Feeling abnormal [None]

NARRATIVE: CASE EVENT DATE: 20141114
